FAERS Safety Report 9228618 (Version 1)
Quarter: 2013Q2

REPORT INFORMATION
  Report Type: Report from Study
  Country: US (occurrence: US)
  Receive Date: 20130412
  Receipt Date: 20130412
  Transmission Date: 20140414
  Serious: Yes (Death, Life-Threatening, Hospitalization)
  Sender: FDA-Public Use
  Company Number: US-ROCHE-769559

PATIENT
  Age: 64 Year
  Sex: Female
  Weight: 96.15 kg

DRUGS (25)
  1. ADO-TRASTUZUMAB EMTANSINE [Suspect]
     Indication: BREAST CANCER
     Route: 042
     Dates: start: 20101006, end: 20110118
  2. ADO-TRASTUZUMAB EMTANSINE [Suspect]
     Dosage: 334 MG, Q21D
     Route: 042
     Dates: start: 20101006, end: 20110118
  3. CELEXA [Concomitant]
     Indication: DEPRESSION
     Dosage: 20 MG, UNK
     Route: 048
  4. AZITHROMYCIN [Concomitant]
     Indication: INFECTION PROPHYLAXIS
     Route: 065
     Dates: start: 20110329, end: 20110404
  5. LOVENOX [Concomitant]
     Route: 065
     Dates: start: 20110329, end: 20110330
  6. LOVENOX [Concomitant]
     Route: 065
     Dates: start: 20110401, end: 20110406
  7. LOVENOX [Concomitant]
     Route: 065
     Dates: start: 20110330, end: 20110331
  8. FUROSEMIDE [Concomitant]
     Route: 065
     Dates: start: 20110330, end: 20110331
  9. LACTULOSE [Concomitant]
     Indication: MENTAL STATUS CHANGES
     Route: 065
     Dates: start: 20110222
  10. SPIRONOLACTONE [Concomitant]
     Route: 065
     Dates: start: 20110222
  11. DECADRON [Concomitant]
     Indication: MENTAL STATUS CHANGES
     Route: 065
     Dates: start: 20110329, end: 20110401
  12. DEXTROSE 5% IN WATER [Concomitant]
     Indication: BLOOD GLUCOSE DECREASED
     Route: 065
     Dates: start: 20110328, end: 20110328
  13. DEXTROSE 5% IN WATER [Concomitant]
     Route: 065
     Dates: start: 20110330, end: 20110406
  14. IOPAMIDOL [Concomitant]
     Route: 042
     Dates: start: 20110329, end: 20110329
  15. ATIVAN [Concomitant]
     Indication: VOMITING
     Route: 065
     Dates: start: 20110328, end: 20110406
  16. LIDOCAINE [Concomitant]
     Indication: PAIN
     Route: 065
     Dates: start: 20110330, end: 20110330
  17. VERSED [Concomitant]
  18. FENTANYL [Concomitant]
     Indication: SEDATION
     Route: 065
     Dates: start: 20110330, end: 20110330
  19. D5 .45NACL [Concomitant]
     Route: 065
     Dates: start: 20110330, end: 20110401
  20. D5 .9NS [Concomitant]
     Route: 065
     Dates: start: 20110401, end: 20110406
  21. VANCOMYCIN [Concomitant]
     Indication: PROPHYLAXIS
     Route: 065
     Dates: start: 20110329, end: 20110404
  22. DEXAMETHASONE [Concomitant]
     Indication: METASTASES TO CENTRAL NERVOUS SYSTEM
     Route: 065
     Dates: start: 20110114
  23. VITAMIN K [Concomitant]
     Route: 065
     Dates: start: 20110329, end: 20110329
  24. VITAMIN K [Concomitant]
     Route: 065
     Dates: start: 20110331, end: 20110331
  25. VITAMIN K [Concomitant]
     Route: 065
     Dates: start: 20110401, end: 20110401

REACTIONS (1)
  - Hepatic failure [Fatal]
